FAERS Safety Report 5037817-9 (Version None)
Quarter: 2006Q2

REPORT INFORMATION
  Report Type: 
  Country: None (occurrence: None)
  Receive Date: 20060628
  Receipt Date: 20060619
  Transmission Date: 20061013
  Serious: Yes (Other)
  Sender: FDA-Public Use
  Company Number: DE-BOEHRINGER INGELHEIM PHARMACEUTICALS, INC.-2006-DE-03124DE

PATIENT
  Sex: Male

DRUGS (1)
  1. APTIVUS [Suspect]
     Indication: HIV INFECTION

REACTIONS (1)
  - CEREBROVASCULAR ACCIDENT [None]
